FAERS Safety Report 6943859-6 (Version None)
Quarter: 2010Q3

REPORT INFORMATION
  Report Type: 
  Country: None (occurrence: None)
  Receive Date: 20100826
  Receipt Date: 20100818
  Transmission Date: 20110219
  Serious: Yes (Hospitalization, Disabling, Other)
  Sender: FDA-Public Use
  Company Number: A0876540A

PATIENT
  Age: 29 Year
  Sex: Female

DRUGS (4)
  1. LAMICTAL XR [Suspect]
     Indication: COMPLEX PARTIAL SEIZURES
     Dosage: 800MG PER DAY
     Route: 048
     Dates: start: 20100624, end: 20100801
  2. LAMICTAL [Suspect]
     Indication: COMPLEX PARTIAL SEIZURES
     Dosage: 400MG TWICE PER DAY
     Route: 048
     Dates: end: 20100415
  3. KEPPRA [Suspect]
     Indication: COMPLEX PARTIAL SEIZURES
     Dosage: 1000MG PER DAY
     Dates: start: 20100624
  4. VIMPAT [Suspect]
     Dosage: 200MG TWICE PER DAY
     Dates: end: 20100624

REACTIONS (7)
  - ABASIA [None]
  - COMPLEX PARTIAL SEIZURES [None]
  - DIPLOPIA [None]
  - DRUG LEVEL INCREASED [None]
  - DRUG TOXICITY [None]
  - VISION BLURRED [None]
  - VOMITING [None]
